FAERS Safety Report 14240846 (Version 1)
Quarter: 2017Q4

REPORT INFORMATION
  Report Type: Spontaneous
  Country: US (occurrence: US)
  Receive Date: 20171130
  Receipt Date: 20171130
  Transmission Date: 20180321
  Serious: Yes (Other)
  Sender: FDA-Public Use
  Company Number: US-009507513-1711USA008720

PATIENT
  Age: 32 Year
  Sex: Female
  Weight: 83.9 kg

DRUGS (6)
  1. MIRENA [Suspect]
     Active Substance: LEVONORGESTREL
  2. IBUPROFEN. [Concomitant]
     Active Substance: IBUPROFEN
  3. NEXPLANON [Suspect]
     Active Substance: ETONOGESTREL
     Indication: CONTRACEPTION
     Dosage: 3 YEARS IMPLANT/IMPLANT INSIDE THE LEFT ARM
     Route: 059
  4. ADDERALL [Concomitant]
     Active Substance: AMPHETAMINE ASPARTATE\AMPHETAMINE SULFATE\DEXTROAMPHETAMINE SACCHARATE\DEXTROAMPHETAMINE SULFATE
  5. LEXAPRO [Concomitant]
     Active Substance: ESCITALOPRAM OXALATE
  6. SINEX [Concomitant]
     Active Substance: ACETAMINOPHEN\DOXYLAMINE SUCCINATE\PHENYLEPHRINE HYDROCHLORIDE
     Route: 045

REACTIONS (17)
  - Device difficult to use [Unknown]
  - Hypoaesthesia [Unknown]
  - Weight increased [Unknown]
  - Nausea [Unknown]
  - Uterine perforation [Unknown]
  - Hypotension [Unknown]
  - Heart rate increased [Unknown]
  - Dizziness [Unknown]
  - Breast tenderness [Unknown]
  - Back pain [Unknown]
  - Eyelid disorder [Unknown]
  - Headache [Unknown]
  - Eye swelling [Unknown]
  - Panic attack [Unknown]
  - Menstruation irregular [Unknown]
  - Paraesthesia [Unknown]
  - Fatigue [Unknown]

NARRATIVE: CASE EVENT DATE: 20171120
